FAERS Safety Report 23938412 (Version 1)
Quarter: 2024Q2

REPORT INFORMATION
  Report Type: Spontaneous
  Country: US (occurrence: US)
  Receive Date: 20240604
  Receipt Date: 20240604
  Transmission Date: 20240716
  Serious: Yes (Hospitalization)
  Sender: FDA-Public Use
  Company Number: US-JNJFOC-20240576693

PATIENT
  Sex: Male

DRUGS (1)
  1. XARELTO [Suspect]
     Active Substance: RIVAROXABAN
     Indication: Product used for unknown indication
     Route: 048

REACTIONS (6)
  - Renal vascular thrombosis [Unknown]
  - Cardiac ablation [Unknown]
  - Feeling abnormal [Unknown]
  - Confusional state [Unknown]
  - Dyspnoea [Unknown]
  - Oxygen saturation decreased [Unknown]
